FAERS Safety Report 9388579 (Version 1)
Quarter: 2013Q3

REPORT INFORMATION
  Report Type: Spontaneous
  Country: US (occurrence: US)
  Receive Date: 20130708
  Receipt Date: 20130708
  Transmission Date: 20140515
  Serious: No
  Sender: FDA-Public Use
  Company Number: US-JNJFOC-20130619617

PATIENT
  Sex: Female
  Weight: 61.69 kg

DRUGS (4)
  1. DURAGESIC [Suspect]
     Indication: ABDOMINAL PAIN
     Route: 062
     Dates: start: 2002
  2. DURAGESIC [Suspect]
     Indication: BACK PAIN
     Route: 062
     Dates: start: 2002
  3. DURAGESIC [Suspect]
     Indication: ABDOMINAL PAIN
     Route: 062
  4. DURAGESIC [Suspect]
     Indication: BACK PAIN
     Route: 062

REACTIONS (4)
  - Drug ineffective [Not Recovered/Not Resolved]
  - Product quality issue [Unknown]
  - Product adhesion issue [Recovered/Resolved]
  - Wrong technique in drug usage process [Recovered/Resolved]
